FAERS Safety Report 4342915-9 (Version None)
Quarter: 2004Q2

REPORT INFORMATION
  Report Type: 
  Country: None (occurrence: None)
  Receive Date: 20040416
  Receipt Date: 20040413
  Transmission Date: 20050107
  Serious: Yes (Death, Hospitalization)
  Sender: FDA-Public Use
  Company Number: HQWYE441513APR04

PATIENT
  Age: 91 Year
  Sex: Female

DRUGS (3)
  1. CORDARONE [Suspect]
     Indication: ATRIAL FIBRILLATION
     Dosage: SEE IMAGE
     Route: 042
     Dates: start: 20040302, end: 20040303
  2. LOVENOX [Concomitant]
  3. OMEPRAZOLE [Concomitant]

REACTIONS (4)
  - CARDIOGENIC SHOCK [None]
  - OEDEMA PERIPHERAL [None]
  - RALES [None]
  - TORSADE DE POINTES [None]
